FAERS Safety Report 16649293 (Version 1)
Quarter: 2019Q3

REPORT INFORMATION
  Report Type: Report from Study
  Country: CH (occurrence: ZW)
  Receive Date: 20190730
  Receipt Date: 20190730
  Transmission Date: 20191004
  Serious: Yes (Death)
  Sender: FDA-Public Use
  Company Number: CH-CASPER PHARMA LLC-2019CAS000388

PATIENT
  Age: 14 Year
  Sex: Male

DRUGS (1)
  1. PENICILLIN G BENZATHINE [Suspect]
     Active Substance: PENICILLIN G BENZATHINE
     Indication: RHEUMATIC HEART DISEASE
     Dosage: 2.4 MILLION INTERNATIONAL UNIT
     Route: 065

REACTIONS (1)
  - Death [Fatal]
